FAERS Safety Report 6763820-4 (Version None)
Quarter: 2010Q2

REPORT INFORMATION
  Report Type: 
  Country: None (occurrence: None)
  Receive Date: 20100610
  Receipt Date: 20100531
  Transmission Date: 20101027
  Serious: Yes (Other)
  Sender: FDA-Public Use
  Company Number: FI-PFIZER INC-2010068211

PATIENT
  Age: 25 Year
  Sex: Female

DRUGS (5)
  1. ZOLOFT [Suspect]
     Indication: PHOBIA
     Dosage: UNK
     Dates: end: 20100501
  2. ZOLOFT [Suspect]
     Indication: ANXIETY DISORDER
  3. ZELDOX [Suspect]
     Indication: PHOBIA
     Dosage: 40 MG, 2X/DAY
     Dates: start: 20100526
  4. ZELDOX [Suspect]
     Indication: ANXIETY DISORDER
  5. OXEPAM [Concomitant]
     Dosage: UNK

REACTIONS (14)
  - AGITATION [None]
  - ANGER [None]
  - CONFUSIONAL STATE [None]
  - DELIRIUM [None]
  - DRUG INEFFECTIVE [None]
  - DRUG WITHDRAWAL SYNDROME [None]
  - DYSPNOEA [None]
  - EMOTIONAL DISORDER [None]
  - HYPOMANIA [None]
  - MENTAL IMPAIRMENT [None]
  - RESTLESSNESS [None]
  - SCREAMING [None]
  - UNEMPLOYMENT [None]
  - URTICARIA [None]
